FAERS Safety Report 17818694 (Version 1)
Quarter: 2020Q2

REPORT INFORMATION
  Report Type: Spontaneous
  Country: CA (occurrence: CA)
  Receive Date: 20200523
  Receipt Date: 20200523
  Transmission Date: 20200714
  Serious: Yes (Other)
  Sender: FDA-Public Use
  Company Number: CA-ROCHE-2600205

PATIENT
  Age: 66 Year
  Sex: Female

DRUGS (9)
  1. CIPROFLOXACIN. [Suspect]
     Active Substance: CIPROFLOXACIN
     Indication: CYSTITIS INTERSTITIAL
     Route: 065
  2. CITALOPRAM HYDROBROMIDE. [Concomitant]
     Active Substance: CITALOPRAM HYDROBROMIDE
  3. FLOVENT [Concomitant]
     Active Substance: FLUTICASONE PROPIONATE
  4. ORENCIA [Concomitant]
     Active Substance: ABATACEPT
     Route: 042
  5. VITAMIN C [Concomitant]
     Active Substance: ASCORBIC ACID
  6. ACTEMRA [Suspect]
     Active Substance: TOCILIZUMAB
     Indication: RHEUMATOID ARTHRITIS
     Route: 042
  7. VENTOLIN [Concomitant]
     Active Substance: ALBUTEROL SULFATE
  8. FOLIC ACID. [Concomitant]
     Active Substance: FOLIC ACID
  9. OXYCODONE [Concomitant]
     Active Substance: OXYCODONE

REACTIONS (9)
  - Limb discomfort [Not Recovered/Not Resolved]
  - Bone pain [Not Recovered/Not Resolved]
  - Diarrhoea [Not Recovered/Not Resolved]
  - Cystitis interstitial [Not Recovered/Not Resolved]
  - Inflammation [Not Recovered/Not Resolved]
  - Musculoskeletal discomfort [Not Recovered/Not Resolved]
  - Urinary tract infection [Not Recovered/Not Resolved]
  - Abdominal discomfort [Not Recovered/Not Resolved]
  - Osteitis [Not Recovered/Not Resolved]
